FAERS Safety Report 17648957 (Version 1)
Quarter: 2020Q2

REPORT INFORMATION
  Report Type: Spontaneous
  Country: DE (occurrence: DE)
  Receive Date: 20200409
  Receipt Date: 20200409
  Transmission Date: 20200713
  Serious: Yes (Other)
  Sender: FDA-Public Use
  Company Number: DE-BEH-2020115213

PATIENT
  Age: 58 Year
  Sex: Male

DRUGS (3)
  1. METOPROLOL. [Concomitant]
     Active Substance: METOPROLOL
  2. PRIVIGEN [Suspect]
     Active Substance: HUMAN IMMUNOGLOBULIN G
     Indication: HYPOGAMMAGLOBULINAEMIA
     Dosage: 31 MILLILITER
     Route: 065
     Dates: start: 20200310, end: 20200310
  3. CANDESARTAN. [Concomitant]
     Active Substance: CANDESARTAN

REACTIONS (7)
  - Hypersensitivity [Recovered/Resolved]
  - Flushing [Recovered/Resolved]
  - Erythema [Recovered/Resolved]
  - Anaphylactic reaction [Recovered/Resolved]
  - Malaise [Recovered/Resolved]
  - Chills [Recovered/Resolved]
  - Dizziness [Recovered/Resolved]

NARRATIVE: CASE EVENT DATE: 20200310
